FAERS Safety Report 8108036 (Version 10)
Quarter: 2013Q2

REPORT INFORMATION
  Report Type: Spontaneous
  Country: US (occurrence: None)
  Receive Date: 20110816
  Receipt Date: 20130415
  Transmission Date: 20140414
  Serious: Yes (Hospitalization, Other)
  Sender: FDA-Public Use
  Company Number: CIP11001932

PATIENT
  Age: 53 Year
  Sex: Female

DRUGS (7)
  1. ACTONEL [Suspect]
     Indication: OSTEOPOROSIS
     Dosage: 35 MG, ORAL
     Route: 048
     Dates: start: 200610, end: 200707
  2. FOSAMAX [Suspect]
     Indication: OSTEOPOROSIS
     Dosage: 70 MG, UNKNOWN REGIMEN, ORAL
     Route: 048
     Dates: start: 200709, end: 200801
  3. FOSAMAX D [Suspect]
     Indication: OSTEOPOROSIS
     Dosage: UNKNOWN DOSAGE / REGIMAN, ORAL
     Route: 048
  4. ALENDRONATE SODIUM [Suspect]
     Indication: OSTEOPOROSIS
     Dosage: 70 MG, UNKNOWN REGIMEN, ORAL, UNKNOWN DOSAGE / REGIMAN, ORAL
     Route: 048
     Dates: start: 200802, end: 20090622
  5. CRESTOR [Concomitant]
  6. LEVOTHYROXINE SODIUM [Concomitant]
  7. CALCIUM CARBONATE [Concomitant]

REACTIONS (20)
  - Pathological fracture [None]
  - Stress fracture [None]
  - Fall [None]
  - Femur fracture [None]
  - Pain in extremity [None]
  - Arthralgia [None]
  - Oedema peripheral [None]
  - Fracture nonunion [None]
  - Device failure [None]
  - Gait disturbance [None]
  - Bone pain [None]
  - Toxicity to various agents [None]
  - Skeletal injury [None]
  - Low turnover osteopathy [None]
  - Pain [None]
  - Osteogenesis imperfecta [None]
  - Walking aid user [None]
  - Groin pain [None]
  - Staphylococcal infection [None]
  - Bone graft [None]
